FAERS Safety Report 7518909-9 (Version None)
Quarter: 2011Q2

REPORT INFORMATION
  Report Type: 
  Country: None (occurrence: None)
  Receive Date: 20110602
  Receipt Date: 20110527
  Transmission Date: 20111010
  Serious: Yes (Other)
  Sender: FDA-Public Use
  Company Number: US-PFIZER INC-2011118126

PATIENT
  Sex: Male

DRUGS (2)
  1. GEODON [Suspect]
     Dosage: 80 MG, 2X/DAY
  2. PROZAC [Suspect]

REACTIONS (2)
  - ANGER [None]
  - INFECTION [None]
